FAERS Safety Report 6901337-4 (Version None)
Quarter: 2010Q3

REPORT INFORMATION
  Report Type: 
  Country: None (occurrence: None)
  Receive Date: 20100803
  Receipt Date: 20080122
  Transmission Date: 20110219
  Serious: No
  Sender: FDA-Public Use
  Company Number: US-PFIZER INC-2008006473

PATIENT
  Sex: Female
  Weight: 78.9 kg

DRUGS (11)
  1. LYRICA [Suspect]
     Indication: FIBROMYALGIA
     Dates: start: 20071101
  2. PROCARDIA XL [Concomitant]
  3. LOPID [Concomitant]
  4. VYTORIN [Concomitant]
  5. PLAVIX [Concomitant]
  6. CORTEF [Concomitant]
  7. ROCALTROL [Concomitant]
  8. CELEXA [Concomitant]
  9. AMITRIPTYLINE HYDROCHLORIDE [Concomitant]
  10. PERCOCET [Concomitant]
  11. DIAZEPAM [Concomitant]

REACTIONS (1)
  - HYPERHIDROSIS [None]
